FAERS Safety Report 5478146-9 (Version None)
Quarter: 2007Q4

REPORT INFORMATION
  Report Type: 
  Country: None (occurrence: None)
  Receive Date: 20071005
  Receipt Date: 20070103
  Transmission Date: 20080405
  Serious: No
  Sender: FDA-Public Use
  Company Number: US-BRISTOL-MYERS SQUIBB COMPANY-13633367

PATIENT
  Age: 64 Year
  Sex: Female

DRUGS (5)
  1. AVAPRO [Suspect]
  2. NORVASC [Suspect]
  3. TOPROL-XL [Suspect]
  4. VASOTEC [Suspect]
  5. ZETIA [Suspect]

REACTIONS (1)
  - BLOOD SODIUM DECREASED [None]
